FAERS Safety Report 10671146 (Version 1)
Quarter: 2014Q4

REPORT INFORMATION
  Report Type: Spontaneous
  Country: US (occurrence: US)
  Receive Date: 20141223
  Receipt Date: 20141223
  Transmission Date: 20150529
  Serious: Yes (Other)
  Sender: FDA-Public Use
  Company Number: US-RB-071467-14

PATIENT
  Age: 18 Year
  Sex: Male
  Weight: 63 kg

DRUGS (1)
  1. DELSYM [Suspect]
     Active Substance: DEXTROMETHORPHAN
     Indication: PRODUCT USED FOR UNKNOWN INDICATION
     Dosage: PATIENT DRANK ENTIRE 5OZ BOTTLE OF PRODUCT.
     Route: 048
     Dates: start: 20141216

REACTIONS (3)
  - Disorientation [Not Recovered/Not Resolved]
  - Euphoric mood [Not Recovered/Not Resolved]
  - Overdose [Not Recovered/Not Resolved]

NARRATIVE: CASE EVENT DATE: 20141216
